FAERS Safety Report 23494187 (Version 2)
Quarter: 2024Q1

REPORT INFORMATION
  Report Type: Spontaneous
  Country: ES (occurrence: ES)
  Receive Date: 20240207
  Receipt Date: 20240304
  Transmission Date: 20240409
  Serious: Yes (Other)
  Sender: FDA-Public Use
  Company Number: ES-SA-2024SA041737

PATIENT
  Age: 5 Year
  Sex: Male

DRUGS (4)
  1. ELOCTA [Suspect]
     Active Substance: EFMOROCTOCOG ALFA
     Indication: Factor VIII deficiency
     Dosage: 500 IU
     Route: 065
     Dates: start: 202301
  2. ELOCTA [Suspect]
     Active Substance: EFMOROCTOCOG ALFA
     Indication: Factor VIII deficiency
     Dosage: 500 IU
     Route: 065
     Dates: start: 202301
  3. ELOCTA [Suspect]
     Active Substance: EFMOROCTOCOG ALFA
     Dosage: 1750 IU/KG ON DEMAND AND FOR EPISODIC OR ROUTINE PROPHYLAXIS
     Route: 042
     Dates: start: 20231025
  4. ELOCTA [Suspect]
     Active Substance: EFMOROCTOCOG ALFA
     Dosage: 1750 IU/KG ON DEMAND AND FOR EPISODIC OR ROUTINE PROPHYLAXIS
     Route: 042
     Dates: start: 20231025

REACTIONS (4)
  - Haemarthrosis [Recovered/Resolved]
  - Haemarthrosis [Recovered/Resolved]
  - Anti factor VIII antibody positive [Recovered/Resolved]
  - Spontaneous haematoma [Recovered/Resolved]

NARRATIVE: CASE EVENT DATE: 20231001
